FAERS Safety Report 6642228-6 (Version None)
Quarter: 2010Q1

REPORT INFORMATION
  Report Type: 
  Country: None (occurrence: None)
  Receive Date: 20100319
  Receipt Date: 20100310
  Transmission Date: 20100710
  Serious: Yes (Hospitalization)
  Sender: FDA-Public Use
  Company Number: PL-JNJFOC-20100304124

PATIENT
  Sex: Female
  Weight: 62.6 kg

DRUGS (5)
  1. REMICADE [Suspect]
     Indication: RHEUMATOID ARTHRITIS
     Route: 042
  2. NALTREXONE HYDROCHLORIDE [Concomitant]
  3. DICLOFENAC [Concomitant]
  4. ENCORTON [Concomitant]
  5. DOXEPIN HCL [Concomitant]

REACTIONS (4)
  - DRUG HYPERSENSITIVITY [None]
  - FACE OEDEMA [None]
  - GENERALISED OEDEMA [None]
  - LIP OEDEMA [None]
